FAERS Safety Report 4343538-8 (Version None)
Quarter: 2004Q2

REPORT INFORMATION
  Report Type: 
  Country: None (occurrence: None)
  Receive Date: 20040419
  Receipt Date: 20040407
  Transmission Date: 20050107
  Serious: Yes (Other)
  Sender: FDA-Public Use
  Company Number: S04-USA-01887-01

PATIENT
  Sex: Female

DRUGS (9)
  1. LEXAPRO [Suspect]
     Indication: DEPRESSION
     Dosage: 10 MG QD PO
     Route: 048
     Dates: start: 20040329
  2. XANAX [Concomitant]
  3. TOPROL-XL [Concomitant]
  4. ALTACE [Concomitant]
  5. PLAVIX [Concomitant]
  6. ASPIRIN [Concomitant]
  7. POTASSIUM [Concomitant]
  8. WATER PILLS [Concomitant]
  9. PHENOBARBITAL TAB [Concomitant]

REACTIONS (4)
  - CONVULSION [None]
  - INCREASED APPETITE [None]
  - INSOMNIA [None]
  - WEIGHT INCREASED [None]
